FAERS Safety Report 5259723-7 (Version None)
Quarter: 2007Q1

REPORT INFORMATION
  Report Type: 
  Country: None (occurrence: None)
  Receive Date: 20061117
  Receipt Date: 20060801
  Transmission Date: 20070707
  Serious: Yes (Other)
  Sender: FDA-Public Use
  Company Number: US-JNJFOC-20060602329

PATIENT
  Age: 22 Year
  Sex: Female

DRUGS (3)
  1. LEVAQUIN [Suspect]
     Indication: SINUSITIS
     Dosage: 750 MG, 1 IN 1 DAY, ORAL
     Route: 048
  2. LEVAQUIN [Suspect]
     Indication: TONSILLITIS
     Dosage: 750 MG, 1 IN 1 DAY, ORAL
     Route: 048
  3. INSULIN [Concomitant]

REACTIONS (1)
  - HYPOGLYCAEMIA [None]
